FAERS Safety Report 25610975 (Version 1)
Quarter: 2025Q3

REPORT INFORMATION
  Report Type: Spontaneous
  Country: US (occurrence: US)
  Receive Date: 20250728
  Receipt Date: 20250728
  Transmission Date: 20251020
  Serious: Yes (Other)
  Sender: HIKMA
  Company Number: US-HIKMA PHARMACEUTICALS-US-H14001-25-08727

PATIENT

DRUGS (3)
  1. COCAINE [Suspect]
     Active Substance: COCAINE
     Indication: Drug abuse
     Route: 065
  2. FENTANYL [Suspect]
     Active Substance: FENTANYL
     Indication: Drug abuse
     Route: 065
  3. NALOXONE [Suspect]
     Active Substance: NALOXONE
     Indication: Overdose
     Route: 045

REACTIONS (1)
  - Pulmonary alveolar haemorrhage [Recovering/Resolving]
